APPROVED DRUG PRODUCT: METHSUXIMIDE
Active Ingredient: METHSUXIMIDE
Strength: 300MG
Dosage Form/Route: CAPSULE;ORAL
Application: A217213 | Product #001 | TE Code: AB
Applicant: NOVITIUM PHARMA LLC
Approved: May 1, 2023 | RLD: No | RS: No | Type: RX